FAERS Safety Report 9528827 (Version 2)
Quarter: 2013Q3

REPORT INFORMATION
  Report Type: Spontaneous
  Country: US (occurrence: US)
  Receive Date: 20130917
  Receipt Date: 20130917
  Transmission Date: 20140515
  Serious: No
  Sender: FDA-Public Use
  Company Number: US-BANPHARM-20120036

PATIENT
  Age: 44 Year
  Sex: Male
  Weight: 70.45 kg

DRUGS (2)
  1. ZYRTEC LIQUID GELS 10 MG [Suspect]
     Indication: HYPERSENSITIVITY
     Dosage: 1DF, QD,
     Route: 048
  2. TYLENOL 500MG [Concomitant]
     Indication: HEADACHE
     Dosage: AS NEEDED
     Route: 048

REACTIONS (1)
  - Drug ineffective [Unknown]
